FAERS Safety Report 7804852-4 (Version None)
Quarter: 2011Q4

REPORT INFORMATION
  Report Type: 
  Country: None (occurrence: None)
  Receive Date: 20111010
  Receipt Date: 20110927
  Transmission Date: 20120403
  Serious: Yes (Hospitalization)
  Sender: FDA-Public Use
  Company Number: FR-SANOFI-AVENTIS-2011SA063064

PATIENT
  Age: 48 Year
  Sex: Male
  Weight: 65 kg

DRUGS (3)
  1. ALLOPURINOL [Suspect]
     Dosage: DOSE:1 UNIT(S)
     Route: 048
     Dates: start: 20110520, end: 20110704
  2. RIFATER [Suspect]
     Indication: TUBERCULOUS PLEURISY
     Dosage: DOSE:6 UNIT(S)
     Route: 048
     Dates: start: 20110520, end: 20110704
  3. MYAMBUTOL [Suspect]
     Indication: TUBERCULOUS PLEURISY
     Dosage: DOSE:4 UNIT(S)
     Route: 048
     Dates: start: 20110520, end: 20110704

REACTIONS (9)
  - CYTOLYTIC HEPATITIS [None]
  - RASH [None]
  - JAUNDICE [None]
  - ORAL CANDIDIASIS [None]
  - VOMITING [None]
  - EOSINOPHILIA [None]
  - ORAL DISORDER [None]
  - PYREXIA [None]
  - DRUG RASH WITH EOSINOPHILIA AND SYSTEMIC SYMPTOMS [None]
